FAERS Safety Report 7402477-6 (Version None)
Quarter: 2011Q2

REPORT INFORMATION
  Report Type: 
  Country: None (occurrence: None)
  Receive Date: 20110408
  Receipt Date: 20110324
  Transmission Date: 20111010
  Serious: Yes (Life-Threatening)
  Sender: FDA-Public Use
  Company Number: PHHY2011US28389

PATIENT
  Sex: Female

DRUGS (2)
  1. LESCOL XL [Suspect]
     Dosage: 80 MG, UNK
     Route: 048
  2. LESCOL XL [Suspect]
     Dosage: 40 MG, UNK
     Route: 048

REACTIONS (1)
  - MALAISE [None]
